FAERS Safety Report 5947884-3 (Version None)
Quarter: 2008Q4

REPORT INFORMATION
  Report Type: 
  Country: None (occurrence: None)
  Receive Date: 20081111
  Receipt Date: 20081103
  Transmission Date: 20090506
  Serious: Yes (Hospitalization)
  Sender: FDA-Public Use
  Company Number: FR-BAYER-200828319GPV

PATIENT
  Age: 74 Year
  Sex: Male

DRUGS (7)
  1. ULTRAVIST 370 [Suspect]
     Indication: COMPUTERISED TOMOGRAM ABDOMEN
     Route: 042
     Dates: start: 20080325, end: 20080325
  2. TENORDATE (ATENOLOL) [Concomitant]
  3. PERINDOPRIL ERBUMINE [Concomitant]
  4. RILMENIDINE (RILMENIDINE) [Concomitant]
  5. ALLOPURINOL [Concomitant]
  6. BIOCARDE (PHYTOTHERAPY) [Concomitant]
  7. RIVATRIL (CLONAZEPAM) [Concomitant]

REACTIONS (1)
  - PRURITUS [None]
